FAERS Safety Report 10097397 (Version 1)
Quarter: 2014Q2

REPORT INFORMATION
  Report Type: Report from Study
  Country: US (occurrence: US)
  Receive Date: 20140423
  Receipt Date: 20140423
  Transmission Date: 20141212
  Serious: Yes (Other)
  Sender: FDA-Public Use
  Company Number: US-BAXTER-2014BAX020420

PATIENT
  Sex: 0

DRUGS (1)
  1. CEFAZOLIN INJECTION [Suspect]
     Indication: INFECTION PROPHYLAXIS
     Route: 065

REACTIONS (1)
  - Incision site infection [Unknown]
